FAERS Safety Report 5033279-6 (Version None)
Quarter: 2006Q2

REPORT INFORMATION
  Report Type: 
  Country: None (occurrence: None)
  Receive Date: 20060623
  Receipt Date: 20050203
  Transmission Date: 20061013
  Serious: Yes (Other)
  Sender: FDA-Public Use
  Company Number: PHNU2005DE00820

PATIENT
  Age: 72 Year
  Sex: Male

DRUGS (1)
  1. AREDIA [Suspect]
     Indication: PLASMACYTOMA
     Dosage: 90 MG, QMO
     Route: 042
     Dates: start: 20000301

REACTIONS (12)
  - BACTERIAL INFECTION [None]
  - BENIGN BONE NEOPLASM [None]
  - BIOPSY BONE ABNORMAL [None]
  - BONE DISORDER [None]
  - HISTOLOGY ABNORMAL [None]
  - MANDIBULECTOMY [None]
  - MUCOSAL INFLAMMATION [None]
  - NERVE INJURY [None]
  - OSTEOMYELITIS [None]
  - OSTEONECROSIS [None]
  - PROCEDURAL COMPLICATION [None]
  - TOOTH EXTRACTION [None]
